FAERS Safety Report 12454709 (Version 5)
Quarter: 2017Q1

REPORT INFORMATION
  Report Type: Report from Study
  Country: JP (occurrence: JP)
  Receive Date: 20160610
  Receipt Date: 20170306
  Transmission Date: 20170428
  Serious: Yes (Hospitalization, Other)
  Sender: FDA-Public Use
  Company Number: JP-BRISTOL-MYERS SQUIBB COMPANY-BMS-2016-045269

PATIENT
  Age: 67 Year
  Sex: Female

DRUGS (26)
  1. NIVOLUMAB [Suspect]
     Active Substance: NIVOLUMAB
     Indication: PRODUCT USED FOR UNKNOWN INDICATION
     Dosage: 3 UNK, UNK
     Route: 041
     Dates: start: 20161020, end: 20161020
  2. NIVOLUMAB [Suspect]
     Active Substance: NIVOLUMAB
     Indication: PRODUCT USED FOR UNKNOWN INDICATION
     Dosage: 3 UNK, UNK
     Route: 041
     Dates: start: 20161117, end: 20161117
  3. NIVOLUMAB [Suspect]
     Active Substance: NIVOLUMAB
     Indication: PRODUCT USED FOR UNKNOWN INDICATION
     Dosage: 3 UNK, UNK
     Route: 041
     Dates: start: 20161201, end: 20161201
  4. NIVOLUMAB [Suspect]
     Active Substance: NIVOLUMAB
     Indication: NON-SMALL CELL LUNG CANCER
     Dosage: 3 MG/KG, UNK
     Route: 041
     Dates: start: 20160215, end: 20160215
  5. NIVOLUMAB [Suspect]
     Active Substance: NIVOLUMAB
     Indication: PRODUCT USED FOR UNKNOWN INDICATION
     Dosage: 3 UNK, UNK
     Route: 041
     Dates: start: 20160229, end: 20160229
  6. NIVOLUMAB [Suspect]
     Active Substance: NIVOLUMAB
     Indication: PRODUCT USED FOR UNKNOWN INDICATION
     Dosage: 3 UNK, UNK
     Route: 041
     Dates: start: 20160825, end: 20160825
  7. NIVOLUMAB [Suspect]
     Active Substance: NIVOLUMAB
     Indication: PRODUCT USED FOR UNKNOWN INDICATION
     Dosage: 3 UNK, UNK
     Route: 041
     Dates: start: 20170223, end: 20170223
  8. NIVOLUMAB [Suspect]
     Active Substance: NIVOLUMAB
     Indication: PRODUCT USED FOR UNKNOWN INDICATION
     Dosage: 3 UNK, UNK
     Route: 041
     Dates: start: 20160314, end: 20160314
  9. NIVOLUMAB [Suspect]
     Active Substance: NIVOLUMAB
     Indication: PRODUCT USED FOR UNKNOWN INDICATION
     Dosage: 3 UNK, UNK
     Route: 041
     Dates: start: 20160425, end: 20160425
  10. NIVOLUMAB [Suspect]
     Active Substance: NIVOLUMAB
     Indication: PRODUCT USED FOR UNKNOWN INDICATION
     Dosage: 3 UNK, UNK
     Route: 041
     Dates: start: 20170112, end: 20170112
  11. NIVOLUMAB [Suspect]
     Active Substance: NIVOLUMAB
     Indication: PRODUCT USED FOR UNKNOWN INDICATION
     Dosage: 3 UNK, UNK
     Route: 041
     Dates: start: 20160616, end: 20160616
  12. NIVOLUMAB [Suspect]
     Active Substance: NIVOLUMAB
     Indication: PRODUCT USED FOR UNKNOWN INDICATION
     Dosage: 3 UNK, UNK
     Route: 041
     Dates: start: 20160714, end: 20160714
  13. NIVOLUMAB [Suspect]
     Active Substance: NIVOLUMAB
     Indication: PRODUCT USED FOR UNKNOWN INDICATION
     Dosage: 3 UNK, UNK
     Route: 041
     Dates: start: 20160630, end: 20160630
  14. NIVOLUMAB [Suspect]
     Active Substance: NIVOLUMAB
     Indication: PRODUCT USED FOR UNKNOWN INDICATION
     Dosage: 3 UNK, UNK
     Route: 041
     Dates: start: 20161006, end: 20161006
  15. NIVOLUMAB [Suspect]
     Active Substance: NIVOLUMAB
     Indication: PRODUCT USED FOR UNKNOWN INDICATION
     Dosage: 3 UNK, UNK
     Route: 041
     Dates: start: 20170126, end: 20170126
  16. NIVOLUMAB [Suspect]
     Active Substance: NIVOLUMAB
     Indication: PRODUCT USED FOR UNKNOWN INDICATION
     Dosage: 3 UNK, UNK
     Route: 041
     Dates: start: 20160411, end: 20160411
  17. NIVOLUMAB [Suspect]
     Active Substance: NIVOLUMAB
     Indication: PRODUCT USED FOR UNKNOWN INDICATION
     Dosage: 3 UNK, UNK
     Route: 041
     Dates: start: 20160728, end: 20160728
  18. NIVOLUMAB [Suspect]
     Active Substance: NIVOLUMAB
     Indication: PRODUCT USED FOR UNKNOWN INDICATION
     Dosage: 3 UNK, UNK
     Route: 041
     Dates: start: 20170209, end: 20170209
  19. NIVOLUMAB [Suspect]
     Active Substance: NIVOLUMAB
     Indication: PRODUCT USED FOR UNKNOWN INDICATION
     Dosage: 3 UNK, UNK
     Route: 041
     Dates: start: 20160908, end: 20160908
  20. NIVOLUMAB [Suspect]
     Active Substance: NIVOLUMAB
     Indication: PRODUCT USED FOR UNKNOWN INDICATION
     Dosage: 3 UNK, UNK
     Route: 041
     Dates: start: 20160923, end: 20160923
  21. NIVOLUMAB [Suspect]
     Active Substance: NIVOLUMAB
     Indication: PRODUCT USED FOR UNKNOWN INDICATION
     Dosage: 3 UNK, UNK
     Route: 041
     Dates: start: 20161216, end: 20161216
  22. NIVOLUMAB [Suspect]
     Active Substance: NIVOLUMAB
     Indication: PRODUCT USED FOR UNKNOWN INDICATION
     Dosage: 3 UNK, UNK
     Route: 041
     Dates: start: 20161229, end: 20161229
  23. NIVOLUMAB [Suspect]
     Active Substance: NIVOLUMAB
     Indication: PRODUCT USED FOR UNKNOWN INDICATION
     Dosage: 3 UNK, UNK
     Route: 041
     Dates: start: 20160328, end: 20160328
  24. NIVOLUMAB [Suspect]
     Active Substance: NIVOLUMAB
     Indication: PRODUCT USED FOR UNKNOWN INDICATION
     Dosage: 3 UNK, UNK
     Route: 041
     Dates: start: 20160509, end: 20160509
  25. NIVOLUMAB [Suspect]
     Active Substance: NIVOLUMAB
     Indication: PRODUCT USED FOR UNKNOWN INDICATION
     Dosage: 3 UNK, UNK
     Route: 041
     Dates: start: 20160812, end: 20160812
  26. NIVOLUMAB [Suspect]
     Active Substance: NIVOLUMAB
     Indication: PRODUCT USED FOR UNKNOWN INDICATION
     Dosage: 3 UNK, UNK
     Route: 041
     Dates: start: 20161104, end: 20161104

REACTIONS (5)
  - Surgery [Unknown]
  - Cardiac pacemaker insertion [Unknown]
  - Bradycardia [Unknown]
  - Atrioventricular block complete [Recovered/Resolved]
  - Pneumothorax [Unknown]

NARRATIVE: CASE EVENT DATE: 20160523
